FAERS Safety Report 7825843-3 (Version None)
Quarter: 2011Q4

REPORT INFORMATION
  Report Type: 
  Country: None (occurrence: None)
  Receive Date: 20111019
  Receipt Date: 20111017
  Transmission Date: 20120403
  Serious: Yes (Other)
  Sender: FDA-Public Use
  Company Number: BR-ROCHE-792637

PATIENT
  Sex: Female
  Weight: 85 kg

DRUGS (8)
  1. MABTHERA [Suspect]
     Dates: start: 20110927, end: 20111010
  2. CALCORT [Concomitant]
  3. NORIPURUM FOLICO [Concomitant]
  4. GLYBURIDE [Concomitant]
  5. DIOVAN [Concomitant]
  6. MABTHERA [Suspect]
     Indication: RHEUMATOID ARTHRITIS
     Route: 065
     Dates: start: 20091201, end: 20091201
  7. PANTOPRAZOLE [Concomitant]
  8. NIFEDIPINE [Concomitant]

REACTIONS (8)
  - ANAEMIA [None]
  - THYROID NEOPLASM [None]
  - LOWER LIMB FRACTURE [None]
  - HYPERTENSION [None]
  - FALL [None]
  - DYSURIA [None]
  - RASH [None]
  - HYPOTENSION [None]
